FAERS Safety Report 18339479 (Version 1)
Quarter: 2020Q4

REPORT INFORMATION
  Report Type: Spontaneous
  Country: GB (occurrence: GB)
  Receive Date: 20201002
  Receipt Date: 20201002
  Transmission Date: 20210113
  Serious: Yes (Other)
  Sender: FDA-Public Use
  Company Number: GB-PFIZER INC-2020376438

PATIENT
  Age: 73 Year
  Sex: Male

DRUGS (1)
  1. GENOTROPIN [Suspect]
     Active Substance: SOMATROPIN
     Dosage: 12 MG, UNK

REACTIONS (4)
  - Blindness [Unknown]
  - Brain neoplasm [Unknown]
  - Urinary incontinence [Unknown]
  - Anal incontinence [Unknown]
